FAERS Safety Report 23887441 (Version 3)
Quarter: 2024Q3

REPORT INFORMATION
  Report Type: Spontaneous
  Country: US (occurrence: US)
  Receive Date: 20240523
  Receipt Date: 20240903
  Transmission Date: 20241016
  Serious: No
  Sender: BIOVITRUM
  Company Number: US-CTI BIOPHARMA-2024US04514

PATIENT
  Age: 81 Year
  Sex: Male

DRUGS (1)
  1. VONJO [Suspect]
     Active Substance: PACRITINIB
     Indication: Essential thrombocythaemia
     Dosage: 100 MG, QD (ONCE DAILY)
     Route: 048
     Dates: start: 20230216

REACTIONS (3)
  - Intentional dose omission [Unknown]
  - Diarrhoea [Not Recovered/Not Resolved]
  - Off label use [Not Recovered/Not Resolved]

NARRATIVE: CASE EVENT DATE: 20230216
